FAERS Safety Report 15273727 (Version 2)
Quarter: 2018Q4

REPORT INFORMATION
  Report Type: Report from Study
  Country: JP (occurrence: JP)
  Receive Date: 20180813
  Receipt Date: 20181217
  Transmission Date: 20190204
  Serious: No
  Sender: FDA-Public Use
  Company Number: JP-B.I. PHARMACEUTICALS,INC./RIDGEFIELD-2018-NB-002010

PATIENT
  Age: 81 Year
  Sex: Male
  Weight: 36.6 kg

DRUGS (3)
  1. BIBF 1120 [Suspect]
     Active Substance: NINTEDANIB
     Indication: IDIOPATHIC PULMONARY FIBROSIS
     Route: 065
     Dates: start: 20170310, end: 20170710
  2. LIVALO [Concomitant]
     Active Substance: PITAVASTATIN CALCIUM
     Indication: PRODUCT USED FOR UNKNOWN INDICATION
     Route: 065
  3. TANATRIL [Concomitant]
     Active Substance: IMIDAPRIL
     Indication: PRODUCT USED FOR UNKNOWN INDICATION
     Route: 065

REACTIONS (3)
  - Insomnia [Unknown]
  - Hepatic function abnormal [Not Recovered/Not Resolved]
  - Chronic hepatitis [Unknown]

NARRATIVE: CASE EVENT DATE: 20170703
